FAERS Safety Report 25774677 (Version 1)
Quarter: 2025Q3

REPORT INFORMATION
  Report Type: Spontaneous
  Country: US (occurrence: US)
  Receive Date: 20250908
  Receipt Date: 20250908
  Transmission Date: 20251021
  Serious: Yes (Hospitalization)
  Sender: PFIZER
  Company Number: US-PFIZER INC-202500176429

PATIENT
  Age: 71 Year
  Sex: Male

DRUGS (12)
  1. VYNDAMAX [Suspect]
     Active Substance: TAFAMIDIS
     Dosage: TAKE 1 CAPSULE BY MOUTH DAILY
     Route: 048
     Dates: start: 20250516
  2. FUROSEMIDE [Concomitant]
     Active Substance: FUROSEMIDE
  3. GABAPENTIN [Concomitant]
     Active Substance: GABAPENTIN
  4. FAMOTIDINE [Concomitant]
     Active Substance: FAMOTIDINE
  5. ROSUVASTATIN [Concomitant]
     Active Substance: ROSUVASTATIN
  6. AMLODIPINE [Concomitant]
     Active Substance: AMLODIPINE BESYLATE
  7. CLOPIDOGREL [Concomitant]
     Active Substance: CLOPIDOGREL BISULFATE
  8. METFORMIN [Concomitant]
     Active Substance: METFORMIN HYDROCHLORIDE
  9. SPIRONOLACTONE [Concomitant]
     Active Substance: SPIRONOLACTONE
  10. CARVEDILOL [Concomitant]
     Active Substance: CARVEDILOL
  11. GLIPIZIDE [Concomitant]
     Active Substance: GLIPIZIDE
  12. DEXTROSE [Concomitant]
     Active Substance: DEXTROSE MONOHYDRATE

REACTIONS (1)
  - Renal injury [Unknown]

NARRATIVE: CASE EVENT DATE: 20250801
